FAERS Safety Report 8533685-9 (Version None)
Quarter: 2012Q3

REPORT INFORMATION
  Report Type: 
  Country: None (occurrence: None)
  Receive Date: 20120724
  Receipt Date: 20120626
  Transmission Date: 20120928
  Serious: Yes (Other)
  Sender: FDA-Public Use
  Company Number: IN-MERCK-1206USA04399

PATIENT

DRUGS (1)
  1. JANUMET [Suspect]
     Dosage: 500MG/50
     Route: 048

REACTIONS (1)
  - WEIGHT DECREASED [None]
